FAERS Safety Report 9198905 (Version 1)
Quarter: 2013Q1

REPORT INFORMATION
  Report Type: Spontaneous
  Country: US (occurrence: US)
  Receive Date: 20130329
  Receipt Date: 20130329
  Transmission Date: 20140127
  Serious: No
  Sender: FDA-Public Use
  Company Number: US-009507513-1302USA002367

PATIENT
  Age: 7 Year
  Sex: Male

DRUGS (2)
  1. CLARITIN ORAL SOLUTION [Suspect]
     Indication: RHINORRHOEA
     Dosage: 5 MG, ONCE
     Route: 048
     Dates: start: 20130202
  2. DISODIUM LAURETH SULFOSUCCINATE [Suspect]
     Indication: PRODUCT USED FOR UNKNOWN INDICATION
     Dosage: UNK
     Dates: start: 20130202

REACTIONS (2)
  - Rash [Recovering/Resolving]
  - Somnolence [Recovering/Resolving]
